FAERS Safety Report 6270883-1 (Version None)
Quarter: 2009Q3

REPORT INFORMATION
  Report Type: 
  Country: None (occurrence: None)
  Receive Date: 20090715
  Receipt Date: 20090701
  Transmission Date: 20100115
  Serious: Yes (Other)
  Sender: FDA-Public Use
  Company Number: 2009SP001715

PATIENT
  Age: 43 Year
  Sex: Female

DRUGS (9)
  1. BROVANA [Suspect]
     Indication: ASTHMA
     Dosage: 15 UG/2ML; PRN; INHALATION
     Route: 055
     Dates: start: 20090301, end: 20090623
  2. PULMICORT-100 [Suspect]
     Indication: ASTHMA
     Dosage: ; BID;
     Dates: start: 20090301, end: 20090622
  3. CELLCEPT [Concomitant]
  4. PREDNISONE TAB [Concomitant]
  5. PRILOSEC [Concomitant]
  6. REGLAN [Concomitant]
  7. IBUPROFEN [Concomitant]
  8. VICODIN [Concomitant]
  9. DIAZEPAM [Concomitant]

REACTIONS (4)
  - AMNESIA [None]
  - CONVULSION [None]
  - INSOMNIA [None]
  - TREATMENT NONCOMPLIANCE [None]
